FAERS Safety Report 8831358 (Version 4)
Quarter: 2013Q1

REPORT INFORMATION
  Report Type: Spontaneous
  Country: GB (occurrence: GB)
  Receive Date: 20121009
  Receipt Date: 20130211
  Transmission Date: 20140127
  Serious: Yes (Disabling, Other)
  Sender: FDA-Public Use
  Company Number: GB-RANBAXY-2012R1-60612

PATIENT
  Age: 64 Year
  Sex: Female
  Weight: 48.1 kg

DRUGS (9)
  1. ATORVASTATIN [Suspect]
     Indication: HYPERLIPIDAEMIA
     Dosage: UNK
     Route: 048
     Dates: start: 20100609
  2. PRAVASTATIN [Suspect]
     Indication: HYPERLIPIDAEMIA
     Dosage: UNK
     Route: 048
     Dates: start: 20100205
  3. SIMVASTATIN [Suspect]
     Indication: HYPERLIPIDAEMIA
     Dosage: UNK
     Route: 048
     Dates: start: 20100128
  4. AMLODIPINE [Concomitant]
     Indication: BLOOD PRESSURE INCREASED
     Dosage: 5.00 MG, QD
     Route: 048
     Dates: start: 20100326, end: 20100401
  5. BENDROFLUMETHIAZIDE [Concomitant]
     Indication: PRODUCT USED FOR UNKNOWN INDICATION
     Dosage: 2.50 MG, QD
     Route: 048
     Dates: start: 20100401, end: 20100429
  6. PARACETAMOL [Concomitant]
     Indication: PAIN
     Dosage: UNK
     Route: 048
     Dates: start: 20080129
  7. PROTHIADEN [Concomitant]
     Indication: DEPRESSION
     Dosage: UNK
     Route: 048
     Dates: start: 20040727
  8. SENNA [Concomitant]
     Indication: CONSTIPATION
     Dosage: 15.00 MG, QD
     Route: 048
     Dates: start: 20100205
  9. RANITIDINE [Concomitant]
     Indication: PRODUCT USED FOR UNKNOWN INDICATION
     Dosage: UNK
     Route: 065

REACTIONS (12)
  - Vision blurred [Unknown]
  - Skin depigmentation [Unknown]
  - Depression [Unknown]
  - Diplopia [Unknown]
  - Ear discomfort [Unknown]
  - Fatigue [Not Recovered/Not Resolved]
  - Hepatomegaly [Unknown]
  - Muscle spasms [Not Recovered/Not Resolved]
  - Paraesthesia [Unknown]
  - Pruritus [Not Recovered/Not Resolved]
  - Local swelling [Unknown]
  - Weight decreased [Not Recovered/Not Resolved]
